FAERS Safety Report 9848127 (Version 1)
Quarter: 2013Q4

REPORT INFORMATION
  Report Type: Spontaneous
  Country: US (occurrence: None)
  Receive Date: 20131226
  Receipt Date: 20131226
  Transmission Date: 20140711
  Serious: No
  Sender: FDA-Public Use
  Company Number: PHEH2013US006752

PATIENT
  Age: 72 Year
  Sex: Female

DRUGS (1)
  1. ARCAPTA (INDACATEROL) UNKNOWN [Suspect]

REACTIONS (1)
  - Incorrect dose administered by device [None]
